FAERS Safety Report 4292157-0 (Version None)
Quarter: 2004Q1

REPORT INFORMATION
  Report Type: 
  Country: None (occurrence: None)
  Receive Date: 20040211
  Receipt Date: 20031222
  Transmission Date: 20041129
  Serious: No
  Sender: FDA-Public Use
  Company Number: US-GLAXOSMITHKLINE-A0443907A

PATIENT
  Age: 61 Year
  Sex: Male

DRUGS (4)
  1. LAMICTAL [Suspect]
     Indication: DEPRESSION
     Dosage: 37.5MG PER DAY
     Route: 048
     Dates: start: 20031201
  2. WELLBUTRIN XL [Concomitant]
  3. FLOMAX [Concomitant]
  4. DETROL [Concomitant]

REACTIONS (5)
  - ERYTHEMA [None]
  - HYPERSENSITIVITY [None]
  - PRURITUS [None]
  - PYREXIA [None]
  - SWELLING FACE [None]
